FAERS Safety Report 6725584-X (Version None)
Quarter: 2010Q2

REPORT INFORMATION
  Report Type: 
  Country: None (occurrence: None)
  Receive Date: 20100514
  Receipt Date: 20100503
  Transmission Date: 20101027
  Serious: Yes (Hospitalization)
  Sender: FDA-Public Use
  Company Number: DE-PFIZER INC-2010055124

PATIENT
  Age: 31 Year
  Sex: Male
  Weight: 130 kg

DRUGS (2)
  1. LYRICA [Suspect]
     Indication: ANXIETY
     Dosage: 75 MG, UNK
     Route: 048
     Dates: start: 20100224, end: 20100311
  2. LYRICA [Suspect]
     Indication: AGORAPHOBIA

REACTIONS (2)
  - AGGRESSION [None]
  - MUSCLE RIGIDITY [None]
